FAERS Safety Report 7374695-7 (Version None)
Quarter: 2011Q1

REPORT INFORMATION
  Report Type: 
  Country: None (occurrence: None)
  Receive Date: 20110325
  Receipt Date: 20100813
  Transmission Date: 20110831
  Serious: No
  Sender: FDA-Public Use
  Company Number: US-MYLANLABS-2010S1014278

PATIENT
  Age: 60 Year
  Sex: Female

DRUGS (3)
  1. METHOCARBAMOL [Concomitant]
  2. FENTANYL-100 [Suspect]
     Indication: PAIN
     Dosage: CHANGED Q72H
     Route: 062
     Dates: start: 20100601
  3. XANAX [Concomitant]

REACTIONS (3)
  - DRUG INEFFECTIVE [None]
  - DRUG SCREEN NEGATIVE [None]
  - PAIN [None]
